FAERS Safety Report 13337190 (Version 1)
Quarter: 2017Q1

REPORT INFORMATION
  Report Type: Spontaneous
  Country: US (occurrence: US)
  Receive Date: 20170314
  Receipt Date: 20170314
  Transmission Date: 20170428
  Serious: Yes (Hospitalization)
  Sender: FDA-Public Use
  Company Number: US-ARALEZ PHARMACEUTICALS RD INC.-ARA-TP-US-2017-105

PATIENT
  Age: 74 Year
  Sex: Female
  Weight: 81.72 kg

DRUGS (8)
  1. ASPIRIN. [Concomitant]
     Active Substance: ASPIRIN
     Indication: CEREBROVASCULAR ACCIDENT
     Route: 048
     Dates: start: 1991
  2. DURENORTHINE [Concomitant]
     Indication: PAIN
     Dosage: 1 TABLET MIXED 2MG/0.5MG
     Route: 048
     Dates: start: 20170209
  3. AMLODIPINE [Concomitant]
     Active Substance: AMLODIPINE BESYLATE
     Indication: HYPERTENSION
     Route: 048
     Dates: start: 2016
  4. NALOXEGOL [Concomitant]
     Active Substance: NALOXEGOL
     Indication: PAIN
     Dosage: 1 TABLET MIXED 2MG/0.5MG
     Route: 048
     Dates: start: 20170209
  5. BRILINTA [Suspect]
     Active Substance: TICAGRELOR
     Indication: ANTICOAGULANT THERAPY
     Route: 048
     Dates: start: 201702
  6. METOPROLOL SUCCINATE. [Suspect]
     Active Substance: METOPROLOL SUCCINATE
     Indication: HYPERTENSION
     Route: 048
  7. TRAIMETHERINE [Concomitant]
     Indication: PERIPHERAL SWELLING
     Route: 048
     Dates: start: 1991
  8. PANTOPROLOLE [Concomitant]
     Indication: ABDOMINAL DISCOMFORT
     Dates: start: 201701

REACTIONS (3)
  - Back pain [Unknown]
  - Hospitalisation [Recovered/Resolved]
  - Renal pain [Unknown]

NARRATIVE: CASE EVENT DATE: 201701
